FAERS Safety Report 5747396-6 (Version None)
Quarter: 2008Q2

REPORT INFORMATION
  Report Type: 
  Country: None (occurrence: None)
  Receive Date: 20080523
  Receipt Date: 20080425
  Transmission Date: 20081010
  Serious: No
  Sender: FDA-Public Use
  Company Number: US-JNJFOC-20080407361

PATIENT
  Sex: Female
  Weight: 113.4 kg

DRUGS (5)
  1. INVEGA [Suspect]
     Indication: DRUG USE FOR UNKNOWN INDICATION
     Route: 048
  2. ESCITALOPRAM [Concomitant]
     Indication: DRUG USE FOR UNKNOWN INDICATION
  3. PROVIGIL [Concomitant]
     Indication: HYPERVIGILANCE
     Dosage: ^400 - 600 MG DAILY^
  4. PROTONIX [Concomitant]
     Indication: GASTROOESOPHAGEAL REFLUX DISEASE
  5. DIAVAN [Concomitant]
     Indication: HYPERTENSION

REACTIONS (2)
  - MUSCULOSKELETAL STIFFNESS [None]
  - SOMNOLENCE [None]
